FAERS Safety Report 23682920 (Version 1)
Quarter: 2024Q1

REPORT INFORMATION
  Report Type: Report from Study
  Country: US (occurrence: US)
  Receive Date: 20240328
  Receipt Date: 20240328
  Transmission Date: 20240410
  Serious: Yes (Other)
  Sender: FDA-Public Use
  Company Number: US-BAYER-2024A044979

PATIENT
  Age: 85 Year
  Sex: Female
  Weight: 96.599 kg

DRUGS (25)
  1. ADEMPAS [Suspect]
     Active Substance: RIOCIGUAT
     Indication: Pulmonary arterial hypertension
     Dosage: UNK
     Dates: start: 20240109
  2. ADEMPAS [Suspect]
     Active Substance: RIOCIGUAT
     Indication: Pulmonary arterial hypertension
     Dosage: 2.5 MG, TID
     Route: 048
  3. LACTASE [Concomitant]
     Active Substance: LACTASE
  4. ATORVASTATIN CALCIUM [Concomitant]
     Active Substance: ATORVASTATIN CALCIUM
  5. CALTRATE WITH VITAMIN D [Concomitant]
     Active Substance: CALCIUM CARBONATE\CHOLECALCIFEROL
  6. VITAMIN D3 [Concomitant]
     Active Substance: CHOLECALCIFEROL
  7. .ALPHA.-TOCOPHEROL [Concomitant]
     Active Substance: .ALPHA.-TOCOPHEROL
  8. TOBRADEX [Concomitant]
     Active Substance: DEXAMETHASONE\TOBRAMYCIN
  9. AQUAPHOR (XIPAMIDE) [Concomitant]
     Active Substance: XIPAMIDE
  10. MAGNESIUM OXIDE [Concomitant]
     Active Substance: MAGNESIUM OXIDE
  11. PANTOPRAZOLE SODIUM [Concomitant]
     Active Substance: PANTOPRAZOLE SODIUM
  12. ALLOPURINOL [Concomitant]
     Active Substance: ALLOPURINOL
  13. PHAZYME [Concomitant]
     Active Substance: DIMETHICONE 410
  14. AFRIN ALLERGY SINUS NASAL [Concomitant]
     Active Substance: OXYMETAZOLINE HYDROCHLORIDE
  15. LOSARTAN POTASSIUM [Concomitant]
     Active Substance: LOSARTAN POTASSIUM
  16. CALCITRIOL [Concomitant]
     Active Substance: CALCITRIOL
  17. OPSUMIT [Concomitant]
     Active Substance: MACITENTAN
  18. LINZESS [Concomitant]
     Active Substance: LINACLOTIDE
  19. METOPROLOL SUCCINATE [Concomitant]
     Active Substance: METOPROLOL SUCCINATE
  20. OXYGEN [Concomitant]
     Active Substance: OXYGEN
  21. DAIRY RELIEF [Concomitant]
  22. BUMETANIDE [Concomitant]
     Active Substance: BUMETANIDE
  23. MECLIZINE HYDROCHLORIDE [Concomitant]
     Active Substance: MECLIZINE HYDROCHLORIDE
  24. GLIMEPIRIDE [Concomitant]
     Active Substance: GLIMEPIRIDE
  25. TRIAMCINOLONE ACETONIDE [Concomitant]
     Active Substance: TRIAMCINOLONE ACETONIDE

REACTIONS (1)
  - Renal failure [None]
